FAERS Safety Report 24658551 (Version 3)
Quarter: 2024Q4

REPORT INFORMATION
  Report Type: Spontaneous
  Country: US (occurrence: US)
  Receive Date: 20241125
  Receipt Date: 20241220
  Transmission Date: 20250115
  Serious: Yes (Other)
  Sender: REVANCE THERAPEUTICS
  Company Number: US-REVANCE THERAPEUTICS INC.-US-REV-2024-000662

PATIENT

DRUGS (1)
  1. DAXIBOTULINUMTOXIN A-LANM [Suspect]
     Active Substance: DAXIBOTULINUMTOXIN A-LANM
     Indication: Skin wrinkling
     Dosage: GLABELLAR LINES 40 UNITS, LATERAL CANTHAL LINES 48 UNITS, FOREHEAD LINES 38 UNITS, BUNNY LINES 16 UN
     Route: 065
     Dates: start: 20241105

REACTIONS (20)
  - Suicidal ideation [Not Recovered/Not Resolved]
  - Migraine [Unknown]
  - Panic attack [Unknown]
  - Post-traumatic stress disorder [Unknown]
  - Ocular discomfort [Unknown]
  - Dizziness [Unknown]
  - Neurological symptom [Not Recovered/Not Resolved]
  - Anxiety [Unknown]
  - Disorientation [Unknown]
  - Chest pain [Unknown]
  - Disturbance in attention [Not Recovered/Not Resolved]
  - Mental disorder [Not Recovered/Not Resolved]
  - Photophobia [Not Recovered/Not Resolved]
  - Night blindness [Not Recovered/Not Resolved]
  - Altered visual depth perception [Not Recovered/Not Resolved]
  - Visual impairment [Unknown]
  - Discomfort [Unknown]
  - Headache [Not Recovered/Not Resolved]
  - No adverse event [Unknown]
  - Off label use [Unknown]

NARRATIVE: CASE EVENT DATE: 20241101
